FAERS Safety Report 9664044 (Version 3)
Quarter: 2013Q4

REPORT INFORMATION
  Report Type: Spontaneous
  Country: US (occurrence: US)
  Receive Date: 20131101
  Receipt Date: 20131202
  Transmission Date: 20140711
  Serious: Yes (Hospitalization)
  Sender: FDA-Public Use
  Company Number: US-CELGENEUS-163-21880-13105414

PATIENT
  Sex: Female
  Weight: 59 kg

DRUGS (1)
  1. REVLIMID [Suspect]
     Indication: PLASMA CELL MYELOMA
     Dosage: 25 MILLIGRAM
     Route: 048
     Dates: start: 201309

REACTIONS (9)
  - Electrolyte imbalance [Unknown]
  - Atrial fibrillation [Unknown]
  - Abdominal discomfort [Unknown]
  - Decreased appetite [Unknown]
  - Dry mouth [Unknown]
  - Dysgeusia [Unknown]
  - Asthenia [Unknown]
  - Muscular weakness [Unknown]
  - Cough [Unknown]
